FAERS Safety Report 16916541 (Version 2)
Quarter: 2019Q4

REPORT INFORMATION
  Report Type: Spontaneous
  Country: US (occurrence: US)
  Receive Date: 20191014
  Receipt Date: 20191206
  Transmission Date: 20200122
  Serious: Yes (Hospitalization)
  Sender: FDA-Public Use
  Company Number: US-ASTRAZENECA-2019SF43468

PATIENT
  Age: 1081 Month
  Sex: Female
  Weight: 90.7 kg

DRUGS (1)
  1. SYMBICORT [Suspect]
     Active Substance: BUDESONIDE\FORMOTEROL FUMARATE DIHYDRATE
     Indication: ASTHMA
     Dosage: 160/4.5 UG, TWO PUFFS TWO TIMES A DAY FOR 8-10 YEARS
     Route: 055

REACTIONS (5)
  - Nephrolithiasis [Unknown]
  - Body height decreased [Unknown]
  - Device failure [Unknown]
  - Hypoacusis [Unknown]
  - Product use issue [Unknown]

NARRATIVE: CASE EVENT DATE: 201906
